FAERS Safety Report 15774438 (Version 2)
Quarter: 2022Q3

REPORT INFORMATION
  Report Type: Spontaneous
  Country: US (occurrence: US)
  Receive Date: 20181229
  Receipt Date: 20220915
  Transmission Date: 20221027
  Serious: Yes (Disabling)
  Sender: FDA-Public Use
  Company Number: US-TEVA-2018-US-992612

PATIENT
  Age: 55 Year
  Sex: Female

DRUGS (7)
  1. DOCETAXEL [Suspect]
     Active Substance: DOCETAXEL
     Indication: Breast cancer female
     Dosage: 160 MG 6 CYCLES EVERY 3 WEEKS
     Route: 065
     Dates: start: 20150212, end: 20150528
  2. TAXOTERE [Suspect]
     Active Substance: DOCETAXEL
     Indication: Breast cancer female
     Dosage: 160 MG 6 CYCLES EVERY 3 WEEKS
     Route: 065
     Dates: start: 20150212, end: 20150528
  3. DOCETAXEL [Suspect]
     Active Substance: DOCETAXEL
     Indication: Breast cancer female
     Dosage: 160 MG 6 CYCLES EVERY 3 WEEKS
     Route: 065
     Dates: start: 20150212, end: 20150528
  4. PERJETA [Concomitant]
     Active Substance: PERTUZUMAB
     Indication: Breast cancer female
     Dosage: 840 MG 6 CYCLES EVERY 3 WEEKS
     Route: 065
     Dates: start: 20150212, end: 20150528
  5. HERCEPTIN [Concomitant]
     Active Substance: TRASTUZUMAB
     Indication: Breast cancer female
     Dosage: 773 MG 6 CYCLES EVERY 3 WEEKS
     Route: 065
     Dates: start: 20150212, end: 20150528
  6. CARBOPLATIN [Concomitant]
     Active Substance: CARBOPLATIN
     Indication: Breast cancer female
     Dosage: 720MG 6 CYCLES EVERY 3 WEEKS
     Route: 065
     Dates: start: 20150212, end: 20150528
  7. ACYCLOVIR [Concomitant]
     Active Substance: ACYCLOVIR
     Indication: Product used for unknown indication
     Route: 065
     Dates: start: 20080908

REACTIONS (4)
  - Madarosis [Not Recovered/Not Resolved]
  - Alopecia areata [Not Recovered/Not Resolved]
  - Hair texture abnormal [Not Recovered/Not Resolved]
  - Hair colour changes [Not Recovered/Not Resolved]

NARRATIVE: CASE EVENT DATE: 20151128
